FAERS Safety Report 4638292-6 (Version None)
Quarter: 2005Q2

REPORT INFORMATION
  Report Type: 
  Country: None (occurrence: None)
  Receive Date: 20050418
  Receipt Date: 20050330
  Transmission Date: 20051028
  Serious: Yes (Other)
  Sender: FDA-Public Use
  Company Number: USA050394411

PATIENT
  Age: 74 Year
  Sex: Male

DRUGS (3)
  1. HUMALOG [Suspect]
     Indication: DIABETES MELLITUS
     Dates: start: 20030101
  2. HUMULIN N [Suspect]
     Indication: DIABETES MELLITUS
     Dosage: 50 U DAY
  3. INSULIN [Suspect]
     Indication: DIABETES MELLITUS
     Dates: start: 19640101

REACTIONS (6)
  - BLOOD GLUCOSE INCREASED [None]
  - DIALYSIS [None]
  - OEDEMA PERIPHERAL [None]
  - PHARMACEUTICAL PRODUCT COMPLAINT [None]
  - RENAL IMPAIRMENT [None]
  - VISUAL ACUITY REDUCED [None]
